FAERS Safety Report 10418779 (Version 1)
Quarter: 2014Q2

REPORT INFORMATION
  Report Type: Spontaneous
  Country: US (occurrence: None)
  Receive Date: 20140617
  Receipt Date: 20140617
  Transmission Date: 20141212
  Serious: Yes (Other)
  Sender: FDA-Public Use
  Company Number: 1306547

PATIENT
  Sex: 0

DRUGS (3)
  1. ACTEMRA [Suspect]
     Indication: PRODUCT USED FOR UNKNOWN INDICATION
  2. PREDNISONE (PREDNISONE) [Suspect]
     Indication: PRODUCT USED FOR UNKNOWN INDICATION
  3. METHOTREXATE (METHOTREXATE) [Suspect]
     Indication: PRODUCT USED FOR UNKNOWN INDICATION

REACTIONS (1)
  - Ophthalmic herpes zoster [None]
